FAERS Safety Report 5690368-0 (Version None)
Quarter: 2008Q2

REPORT INFORMATION
  Report Type: 
  Country: None (occurrence: None)
  Receive Date: 20080401
  Receipt Date: 20030915
  Transmission Date: 20081010
  Serious: Yes (Death, Hospitalization, Other)
  Sender: FDA-Public Use
  Company Number: US-ROCHE-345585

PATIENT
  Age: 74 Year
  Sex: Male
  Weight: 90 kg

DRUGS (6)
  1. XELODA [Suspect]
     Indication: COLON CANCER
     Route: 048
     Dates: start: 20030811, end: 20030815
  2. LOPRESSOR [Concomitant]
     Indication: MYOCARDIAL INFARCTION
     Route: 048
  3. PLAVIX [Concomitant]
     Indication: MYOCARDIAL INFARCTION
     Route: 048
  4. LIPITOR [Concomitant]
     Route: 048
  5. CELEBREX [Concomitant]
     Indication: PROPHYLAXIS
     Route: 048
     Dates: start: 20030811, end: 20030815
  6. HEPARIN [Concomitant]
     Dates: start: 20030825, end: 20030828

REACTIONS (7)
  - BLOOD GASES ABNORMAL [None]
  - CARDIAC FAILURE CONGESTIVE [None]
  - DEATH [None]
  - DEEP VEIN THROMBOSIS [None]
  - DYSPNOEA [None]
  - POLYURIA [None]
  - PULMONARY EMBOLISM [None]
